FAERS Safety Report 14571496 (Version 1)
Quarter: 2018Q1

REPORT INFORMATION
  Report Type: Spontaneous
  Country: US (occurrence: US)
  Receive Date: 20180226
  Receipt Date: 20180226
  Transmission Date: 20180509
  Serious: No
  Sender: FDA-Public Use
  Company Number: US-009507513-1802USA008145

PATIENT
  Sex: Male

DRUGS (3)
  1. OPDIVO [Concomitant]
     Active Substance: NIVOLUMAB
     Dosage: UNK
  2. YERVOY [Concomitant]
     Active Substance: IPILIMUMAB
     Dosage: UNK
  3. KEYTRUDA [Suspect]
     Active Substance: PEMBROLIZUMAB
     Indication: PROSTATE CANCER
     Dosage: 2 DF, UNK

REACTIONS (2)
  - Product use in unapproved indication [Unknown]
  - Prostatic specific antigen increased [Unknown]
